FAERS Safety Report 20840948 (Version 4)
Quarter: 2022Q2

REPORT INFORMATION
  Report Type: Spontaneous
  Country: CA (occurrence: CA)
  Receive Date: 20220517
  Receipt Date: 20220531
  Transmission Date: 20220721
  Serious: Yes (Other)
  Sender: FDA-Public Use
  Company Number: CA-PFIZER INC-202200695738

PATIENT
  Age: 32 Year
  Sex: Male

DRUGS (1)
  1. ABRILADA [Suspect]
     Active Substance: ADALIMUMAB-AFZB
     Indication: Colitis ulcerative
     Dosage: 1 DF,WEEK0 160 MG, WEEK 2- 80 MG THEN 40 MG EVERY OTHER WEEK STARTING WEEK4 (160 MG WAS GIVEN IN ONE
     Route: 058
     Dates: start: 20220509

REACTIONS (3)
  - Hypotension [Recovering/Resolving]
  - Syncope [Not Recovered/Not Resolved]
  - Pallor [Not Recovered/Not Resolved]

NARRATIVE: CASE EVENT DATE: 20220501
